FAERS Safety Report 11142714 (Version 1)
Quarter: 2015Q2

REPORT INFORMATION
  Report Type: Spontaneous
  Country: US (occurrence: None)
  Receive Date: 20150526
  Receipt Date: 20150526
  Transmission Date: 20150821
  Serious: Yes (Other)
  Sender: FDA-Public Use
  Company Number: None

PATIENT
  Age: 60 Year
  Sex: Female
  Weight: 61.69 kg

DRUGS (11)
  1. MAGNESIUM [Concomitant]
     Active Substance: MAGNESIUM
  2. MULTI-VITAMIN SUCH AS CENTRUM SILVER [Concomitant]
  3. VITAMIN D [Concomitant]
     Active Substance: CHOLECALCIFEROL
  4. PREMARIN [Suspect]
     Active Substance: ESTROGENS, CONJUGATED
     Indication: PROPHYLAXIS URINARY TRACT INFECTION
     Dosage: 1 GRAM  2 X PER WEEK  VAGINAL
     Route: 067
     Dates: start: 20150319, end: 20150522
  5. ALLER-TEC [Concomitant]
  6. LACTASE ENZYME [Concomitant]
  7. PREMARIN [Suspect]
     Active Substance: ESTROGENS, CONJUGATED
     Indication: MENOPAUSE
     Dosage: 1 GRAM  2 X PER WEEK  VAGINAL
     Route: 067
     Dates: start: 20150319, end: 20150522
  8. CALCIUM [Concomitant]
     Active Substance: CALCIUM
  9. GLUCOSAMINE [Concomitant]
     Active Substance: GLUCOSAMINE
  10. PREMARIN [Suspect]
     Active Substance: ESTROGENS, CONJUGATED
     Indication: SEXUAL DYSFUNCTION
     Dosage: 1 GRAM  2 X PER WEEK  VAGINAL
     Route: 067
     Dates: start: 20150319, end: 20150522
  11. IBUPROFEN. [Concomitant]
     Active Substance: IBUPROFEN

REACTIONS (3)
  - Urticaria [None]
  - Pruritus [None]
  - Rash [None]

NARRATIVE: CASE EVENT DATE: 20150522
